FAERS Safety Report 9817212 (Version 3)
Quarter: 2014Q2

REPORT INFORMATION
  Report Type: Spontaneous
  Country: JP (occurrence: JP)
  Receive Date: 20140114
  Receipt Date: 20140401
  Transmission Date: 20141212
  Serious: Yes (Death, Other)
  Sender: FDA-Public Use
  Company Number: JP-009507513-1401JPN005705

PATIENT
  Age: 81 Year
  Sex: Female

DRUGS (7)
  1. STROMECTOL TABLETS 3 MG [Suspect]
     Indication: ACARODERMATITIS
     Dosage: 12 MG, QD
     Route: 048
     Dates: start: 20131213, end: 20131213
  2. STROMECTOL TABLETS 3 MG [Suspect]
     Dosage: 12 MG, QD
     Route: 048
     Dates: start: 20131220, end: 20131220
  3. DIGOXIN [Concomitant]
     Dosage: 0.0625 MG, QD
     Route: 048
     Dates: start: 20131224
  4. MUCOSTA [Concomitant]
     Dosage: 100 MG, TID
     Route: 048
     Dates: start: 20131224
  5. EURAX [Concomitant]
     Indication: ACARODERMATITIS
     Dosage: DAILY DOSAGE UNKNOWN
     Route: 061
     Dates: start: 20131207
  6. MAGLAX (MAGNESIUM OXIDE) [Concomitant]
     Dosage: 330 MG, TID
     Route: 048
  7. ALOSENN (SENNA) [Concomitant]
     Dosage: 1 G, QD
     Route: 048

REACTIONS (5)
  - Depressed level of consciousness [Fatal]
  - Asphyxia [Fatal]
  - Vomiting [Unknown]
  - Pruritus [Unknown]
  - Rash [Unknown]
